FAERS Safety Report 20387123 (Version 1)
Quarter: 2022Q1

REPORT INFORMATION
  Report Type: Spontaneous
  Country: US (occurrence: US)
  Receive Date: 20220127
  Receipt Date: 20220127
  Transmission Date: 20220424
  Serious: No
  Sender: FDA-Public Use
  Company Number: US-MMM-5NV9EO6D

PATIENT
  Age: 39 Year
  Sex: Female

DRUGS (1)
  1. BOTOX [Suspect]
     Active Substance: ONABOTULINUMTOXINA
     Indication: Torticollis
     Dosage: 100 UNITS, SINGLE
     Dates: start: 20210510, end: 20210510

REACTIONS (5)
  - Lymphadenopathy [Recovered/Resolved]
  - Ear swelling [Recovered/Resolved]
  - Red ear syndrome [Recovered/Resolved]
  - Therapeutic response decreased [Unknown]
  - Pruritus [Recovered/Resolved]

NARRATIVE: CASE EVENT DATE: 20210512
